FAERS Safety Report 8591835 (Version 6)
Quarter: 2013Q1

REPORT INFORMATION
  Report Type: Report from Study
  Country: DE (occurrence: DE)
  Receive Date: 20120601
  Receipt Date: 20130307
  Transmission Date: 20140127
  Serious: Yes (Death, Other)
  Sender: FDA-Public Use
  Company Number: PHHY2012DE046453

PATIENT
  Age: 69 Year
  Sex: Male
  Weight: 82 kg

DRUGS (9)
  1. AMN107 [Suspect]
     Indication: CHRONIC MYELOID LEUKAEMIA
     Dosage: 200 MG, PER DAY
     Route: 048
     Dates: start: 20100512, end: 20110308
  2. FUROSEMIDE [Suspect]
     Indication: OEDEMA
     Dosage: 20 MG, DAILY
     Route: 048
     Dates: start: 20101012
  3. RAMIPRIL [Suspect]
     Indication: HYPERTENSION
     Dosage: 5 MG, DAILY
     Route: 048
     Dates: start: 20070602
  4. MARCUMAR [Suspect]
     Indication: ARTERIAL OCCLUSIVE DISEASE
     Dosage: 3 MG, DAILY
     Route: 030
     Dates: start: 20080403
  5. SPIRONOLACTONE [Concomitant]
  6. CARVEDILOL [Concomitant]
  7. TORASEMIDE [Concomitant]
  8. DIGITOXIN [Concomitant]
  9. XIPAMIDE [Concomitant]

REACTIONS (39)
  - Cardiac failure [Fatal]
  - Atrial fibrillation [Fatal]
  - Vascular dementia [Unknown]
  - Aortic valve disease [Unknown]
  - Cerebral arteriosclerosis [Unknown]
  - Gastrointestinal angiodysplasia [Unknown]
  - Heart valve incompetence [Unknown]
  - Ischaemic cardiomyopathy [Unknown]
  - Cardiomegaly [Unknown]
  - Ejection fraction decreased [Unknown]
  - Peripheral arterial occlusive disease [Unknown]
  - Aortic stenosis [Unknown]
  - Carotid artery stenosis [Unknown]
  - Haemorrhage intracranial [Unknown]
  - Dyslipidaemia [Unknown]
  - Renal failure [Unknown]
  - Hypertension [Unknown]
  - Hiatus hernia [Unknown]
  - Gastritis erosive [Unknown]
  - Hyponatraemia [Unknown]
  - Circulatory collapse [Unknown]
  - Gastrointestinal haemorrhage [Not Recovered/Not Resolved]
  - Dizziness [Not Recovered/Not Resolved]
  - Fall [Not Recovered/Not Resolved]
  - Fatigue [Not Recovered/Not Resolved]
  - General physical health deterioration [Not Recovered/Not Resolved]
  - Anaemia [Not Recovered/Not Resolved]
  - Pruritus generalised [Not Recovered/Not Resolved]
  - Confusional state [Not Recovered/Not Resolved]
  - Oedema [Not Recovered/Not Resolved]
  - Eczema [Unknown]
  - Infected dermal cyst [Unknown]
  - Large intestine polyp [Unknown]
  - Acquired phimosis [Unknown]
  - Penile oedema [Unknown]
  - Scrotal oedema [Unknown]
  - Oedema peripheral [Unknown]
  - Micturition urgency [Unknown]
  - Urinary hesitation [Unknown]
